FAERS Safety Report 13636193 (Version 1)
Quarter: 2017Q2

REPORT INFORMATION
  Report Type: Spontaneous
  Country: US (occurrence: US)
  Receive Date: 20170609
  Receipt Date: 20170609
  Transmission Date: 20170830
  Serious: Yes (Hospitalization)
  Sender: FDA-Public Use
  Company Number: US-BRAINTREE LABORATORIES-170338

PATIENT
  Age: 79 Year
  Sex: Male
  Weight: 84.82 kg

DRUGS (1)
  1. SUPREP BOWEL PREP [Suspect]
     Active Substance: MAGNESIUM SULFATE\POTASSIUM SULFATE\SODIUM SULFATE
     Indication: COLONOSCOPY
     Dosage: 0.5 X 6 OZ.BOTTLE
     Route: 048
     Dates: start: 20170221, end: 20170221

REACTIONS (3)
  - Anaphylactic shock [None]
  - Renal failure [None]
  - Orchitis [None]

NARRATIVE: CASE EVENT DATE: 20170221
